FAERS Safety Report 7785650-7 (Version None)
Quarter: 2011Q3

REPORT INFORMATION
  Report Type: 
  Country: None (occurrence: None)
  Receive Date: 20110929
  Receipt Date: 20110929
  Transmission Date: 20111222
  Serious: Yes (Life-Threatening, Hospitalization)
  Sender: FDA-Public Use
  Company Number: None

PATIENT
  Age: 65 Year
  Sex: Male
  Weight: 72.8 kg

DRUGS (2)
  1. DAPSONE [Suspect]
     Indication: LOCALISED INFECTION
     Dosage: 100 MG
     Route: 048
     Dates: start: 20110710, end: 20110714
  2. DAPSONE [Suspect]
     Indication: ARTHROPOD BITE
     Dosage: 100 MG
     Route: 048
     Dates: start: 20110710, end: 20110714

REACTIONS (3)
  - HYPOXIA [None]
  - METHAEMOGLOBINAEMIA [None]
  - CYANOSIS [None]
